FAERS Safety Report 6199102-1 (Version None)
Quarter: 2009Q2

REPORT INFORMATION
  Report Type: 
  Country: None (occurrence: None)
  Receive Date: 20090521
  Receipt Date: 20090521
  Transmission Date: 20091009
  Serious: Yes (Hospitalization)
  Sender: FDA-Public Use
  Company Number: None

PATIENT
  Age: 44 Year
  Weight: 31.2528 kg

DRUGS (5)
  1. LIDOCAINE HCL [Suspect]
     Dosage: 4 ML, ONCE OTHER
     Route: 050
     Dates: start: 20090421, end: 20090421
  2. EPINEPHRINE [Suspect]
     Dosage: .4 ML, ONCE, OTHER
     Route: 050
     Dates: start: 20090421, end: 20090421
  3. ESTRATEST [Concomitant]
  4. LIPITOR [Concomitant]
  5. ASPIRIN [Concomitant]

REACTIONS (3)
  - ARRHYTHMIA [None]
  - BLOOD PRESSURE DIASTOLIC DECREASED [None]
  - HYPERTENSION [None]
